FAERS Safety Report 5576248-X (Version None)
Quarter: 2007Q4

REPORT INFORMATION
  Report Type: 
  Country: None (occurrence: None)
  Receive Date: 20071228
  Receipt Date: 20071218
  Transmission Date: 20080405
  Serious: Yes (Hospitalization)
  Sender: FDA-Public Use
  Company Number: US-ELI_LILLY_AND_COMPANY-US200712003707

PATIENT
  Sex: Female

DRUGS (8)
  1. CYMBALTA [Suspect]
     Indication: DEPRESSION
     Dosage: 20 MG, DAILY (1/D)
     Dates: start: 20070926, end: 20071001
  2. LISINOPRIL [Concomitant]
     Dosage: 10 MG, UNK
  3. MAXZIDE [Concomitant]
  4. COLACE [Concomitant]
     Dosage: 100 MG, UNK
  5. REMERON [Concomitant]
     Dosage: 7.5 MG, EACH EVENING
  6. FORADIL [Concomitant]
  7. ALEVE [Concomitant]
  8. RISPERDAL [Concomitant]
     Dosage: 0.5 MG, UNK

REACTIONS (5)
  - CONFUSIONAL STATE [None]
  - FEELING ABNORMAL [None]
  - HALLUCINATION [None]
  - INSOMNIA [None]
  - LOGORRHOEA [None]
